FAERS Safety Report 7112156-0 (Version None)
Quarter: 2010Q4

REPORT INFORMATION
  Report Type: 
  Country: None (occurrence: None)
  Receive Date: 20101119
  Receipt Date: 20100127
  Transmission Date: 20110411
  Serious: No
  Sender: FDA-Public Use
  Company Number: A0839490A

PATIENT
  Age: 78 Year
  Sex: Male
  Weight: 98.2 kg

DRUGS (4)
  1. AVODART [Suspect]
     Dosage: .5MG UNKNOWN
     Route: 048
     Dates: start: 20100110, end: 20100113
  2. TEKTURNA [Concomitant]
     Indication: BLOOD PRESSURE
     Dosage: 150MG PER DAY
     Route: 048
     Dates: start: 20091101
  3. ATENOLOL [Concomitant]
     Dosage: 25MG PER DAY
     Route: 048
  4. HYDROCHLOROTHIAZIDE [Concomitant]
     Dosage: 25MG PER DAY
     Route: 048

REACTIONS (3)
  - FEELING ABNORMAL [None]
  - URINE ANALYSIS ABNORMAL [None]
  - URINE FLOW DECREASED [None]
